FAERS Safety Report 9959305 (Version 1)
Quarter: 2014Q1

REPORT INFORMATION
  Report Type: Report from Study
  Country: US (occurrence: US)
  Receive Date: 20140305
  Receipt Date: 20140305
  Transmission Date: 20141002
  Serious: No
  Sender: FDA-Public Use
  Company Number: US-ABBVIE-13P-163-1106600-00

PATIENT
  Age: 75 Year
  Sex: Female

DRUGS (8)
  1. HUMIRA [Suspect]
     Indication: CROHN^S DISEASE
     Dates: start: 20130520
  2. HUMIRA [Suspect]
     Dates: start: 20130603
  3. HUMIRA [Suspect]
     Dates: start: 20130617
  4. LIALDA [Concomitant]
     Indication: CROHN^S DISEASE
  5. LIPITOR [Concomitant]
     Indication: BLOOD CHOLESTEROL
  6. LOSARTAN [Concomitant]
     Indication: HYPERTENSION
     Dosage: 50 MG 1 TAB DAILY
  7. PROTONIX [Concomitant]
     Indication: PRODUCT USED FOR UNKNOWN INDICATION
     Dosage: 1 TAB DAILY
  8. EUFLEXXA [Concomitant]
     Indication: PROPHYLAXIS

REACTIONS (3)
  - Incorrect dose administered [Recovered/Resolved]
  - Injection site pain [Recovered/Resolved]
  - Wrong technique in drug usage process [Recovered/Resolved]
